FAERS Safety Report 18924046 (Version 2)
Quarter: 2021Q3

REPORT INFORMATION
  Report Type: Spontaneous
  Country: US (occurrence: US)
  Receive Date: 20210222
  Receipt Date: 20210728
  Transmission Date: 20211014
  Serious: Yes (Death, Other)
  Sender: FDA-Public Use
  Company Number: US-ASTRAZENECA-2021A073722

PATIENT
  Sex: Male

DRUGS (3)
  1. NEXIUM 24HR [Suspect]
     Active Substance: ESOMEPRAZOLE MAGNESIUM
     Indication: GASTROOESOPHAGEAL REFLUX DISEASE
     Dosage: UNK
     Route: 048
  2. PREVACID [Suspect]
     Active Substance: LANSOPRAZOLE
     Indication: GASTROOESOPHAGEAL REFLUX DISEASE
     Dosage: UNK
     Route: 065
  3. NEXIUM [Suspect]
     Active Substance: ESOMEPRAZOLE MAGNESIUM
     Indication: GASTROOESOPHAGEAL REFLUX DISEASE
     Dosage: PROLONGED?RELEASE CAPSULE
     Route: 048

REACTIONS (7)
  - Dialysis [Unknown]
  - Chronic kidney disease [Unknown]
  - Peritoneal dialysis [Unknown]
  - End stage renal disease [Unknown]
  - Acute kidney injury [Unknown]
  - Haemodialysis [Unknown]
  - Death [Fatal]

NARRATIVE: CASE EVENT DATE: 20080103
